FAERS Safety Report 18107748 (Version 5)
Quarter: 2020Q4

REPORT INFORMATION
  Report Type: Other
  Country: JP (occurrence: JP)
  Receive Date: 20200804
  Receipt Date: 20201123
  Transmission Date: 20210113
  Serious: Yes (Death, Hospitalization, Other)
  Sender: FDA-Public Use
  Company Number: JP-ROCHE-2650199

PATIENT
  Age: 74 Year
  Sex: Male

DRUGS (1)
  1. EMICIZUMAB. [Suspect]
     Active Substance: EMICIZUMAB
     Indication: HAEMOPHILIA A WITH ANTI FACTOR VIII
     Route: 058
     Dates: start: 20190403, end: 20200803

REACTIONS (8)
  - Disseminated intravascular coagulation [Fatal]
  - Pyrexia [Unknown]
  - Asthenia [Unknown]
  - Haemoptysis [Unknown]
  - Decreased appetite [Unknown]
  - Infection [Unknown]
  - Malaise [Unknown]
  - Pleural effusion [Recovering/Resolving]

NARRATIVE: CASE EVENT DATE: 2020
